FAERS Safety Report 9675280 (Version 1)
Quarter: 2013Q4

REPORT INFORMATION
  Report Type: Spontaneous
  Country: US (occurrence: US)
  Receive Date: 20131107
  Receipt Date: 20131107
  Transmission Date: 20140711
  Serious: No
  Sender: FDA-Public Use
  Company Number: US-PFIZER INC-2013313945

PATIENT
  Age: 61 Year
  Sex: Female

DRUGS (1)
  1. ADVIL [Suspect]
     Indication: MYALGIA
     Dosage: UNK, THREE TIMES A DAY (2 AT 11 O^CLOCK IN THE MORNING, 1 AT 3 O^CLOCK AND 1 AT 7 O^CLOCK)
     Dates: start: 20131031, end: 20131101

REACTIONS (1)
  - Lip swelling [Recovering/Resolving]
